FAERS Safety Report 23677565 (Version 1)
Quarter: 2024Q1

REPORT INFORMATION
  Report Type: Spontaneous
  Country: US (occurrence: US)
  Receive Date: 20240327
  Receipt Date: 20240327
  Transmission Date: 20240410
  Serious: No
  Sender: FDA-Public Use
  Company Number: US-PFIZER INC-202400072822

PATIENT

DRUGS (1)
  1. NGENLA [Suspect]
     Active Substance: SOMATROGON-GHLA

REACTIONS (1)
  - Emotional disorder [Recovered/Resolved]

NARRATIVE: CASE EVENT DATE: 20240326
